FAERS Safety Report 23036062 (Version 2)
Quarter: 2024Q1

REPORT INFORMATION
  Report Type: Spontaneous
  Country: JP (occurrence: JP)
  Receive Date: 20231006
  Receipt Date: 20240101
  Transmission Date: 20240409
  Serious: Yes (Hospitalization, Other)
  Sender: FDA-Public Use
  Company Number: JP-DSJP-DSJ-2023-137855

PATIENT
  Age: 80 Year
  Sex: Female

DRUGS (13)
  1. DENOSUMAB [Suspect]
     Active Substance: DENOSUMAB
     Indication: Osteoporosis
     Dosage: 60 MILLIGRAM, Q6MO
     Route: 058
     Dates: start: 20201020
  2. DENOSUMAB [Suspect]
     Active Substance: DENOSUMAB
     Dosage: 60 MILLIGRAM, Q6MO
     Route: 058
     Dates: start: 20210406
  3. ALFAROL [Suspect]
     Active Substance: ALFACALCIDOL
     Indication: Osteoporosis
     Dosage: 1 MICROGRAM, QD
     Route: 048
     Dates: start: 20201020
  4. CALCIUM ASPARTATE [Suspect]
     Active Substance: CALCIUM ASPARTATE
     Indication: Osteoporosis
     Dosage: 600MG/DAY, TID
     Route: 048
     Dates: start: 20201020
  5. POTASSIUM ASPARTATE [Concomitant]
     Active Substance: POTASSIUM ASPARTATE
     Dosage: UNK
     Route: 065
     Dates: start: 20201020
  6. PREDNISOLONE [Concomitant]
     Active Substance: PREDNISOLONE
     Indication: Eosinophilia
     Dosage: UNK
     Route: 048
     Dates: start: 20190912
  7. PREDNISOLONE [Concomitant]
     Active Substance: PREDNISOLONE
     Dosage: UNK
     Route: 048
  8. MONTELUKAST [Concomitant]
     Active Substance: MONTELUKAST SODIUM
     Indication: Eosinophilia
     Dosage: 10 MG, QD
     Route: 048
     Dates: start: 20191219
  9. BEPOTASTINE BESYLATE [Concomitant]
     Active Substance: BEPOTASTINE BESYLATE
     Indication: Eosinophilia
     Dosage: 40MG/DAY, BID
     Route: 048
     Dates: start: 20191219
  10. SULFAMETHOXAZOLE\TRIMETHOPRIM [Concomitant]
     Active Substance: SULFAMETHOXAZOLE\TRIMETHOPRIM
     Indication: Eosinophilia
     Dosage: 1 DF, QD
     Route: 048
     Dates: start: 20200227
  11. POLAPREZINC [Concomitant]
     Active Substance: POLAPREZINC
     Indication: Eosinophilia
     Dosage: 150MG/DAY, BID
     Route: 048
     Dates: start: 20200129
  12. VONOPRAZAN FUMARATE [Concomitant]
     Active Substance: VONOPRAZAN FUMARATE
     Indication: Eosinophilia
     Dosage: 10 MG, QD
     Route: 048
     Dates: start: 20200203
  13. LYRICA [Concomitant]
     Active Substance: PREGABALIN
     Indication: Eosinophilia
     Dosage: 50MG/DAY, BID
     Route: 048
     Dates: start: 20200221

REACTIONS (2)
  - Hypercalcaemia [Recovered/Resolved]
  - Acute kidney injury [Recovered/Resolved]

NARRATIVE: CASE EVENT DATE: 20201106
